FAERS Safety Report 21235506 (Version 2)
Quarter: 2022Q4

REPORT INFORMATION
  Report Type: Spontaneous
  Country: US (occurrence: US)
  Receive Date: 20220821
  Receipt Date: 20221027
  Transmission Date: 20230112
  Serious: No
  Sender: FDA-Public Use
  Company Number: US-BRISTOL-MYERS SQUIBB COMPANY-2022-091814

PATIENT
  Age: 56 Year
  Sex: Female

DRUGS (2)
  1. SPRYCEL [Suspect]
     Active Substance: DASATINIB
     Indication: Acute lymphocytic leukaemia
     Dosage: 100 MILLIGRAM, DAILY
     Route: 048
     Dates: start: 20220601
  2. SPRYCEL [Suspect]
     Active Substance: DASATINIB
     Dosage: DAILY 70 MG
     Route: 048
     Dates: start: 202209

REACTIONS (3)
  - Confusional state [Unknown]
  - Decreased appetite [Unknown]
  - Weight decreased [Unknown]
